FAERS Safety Report 14965471 (Version 1)
Quarter: 2018Q2

REPORT INFORMATION
  Report Type: Spontaneous
  Country: PL (occurrence: PL)
  Receive Date: 20180601
  Receipt Date: 20180601
  Transmission Date: 20180711
  Serious: Yes (Hospitalization)
  Sender: FDA-Public Use
  Company Number: PL-ANIPHARMA-2018-PL-000020

PATIENT
  Age: 50 Year
  Sex: Female

DRUGS (2)
  1. ANASTROZOLE. [Suspect]
     Active Substance: ANASTROZOLE
     Route: 048
     Dates: start: 2012
  2. TAMOXIFEN [Suspect]
     Active Substance: TAMOXIFEN
     Route: 048
     Dates: start: 200808, end: 2015

REACTIONS (7)
  - Cough [Unknown]
  - Endometrial hypertrophy [Unknown]
  - Metastasis [Unknown]
  - Lymphadenopathy mediastinal [Unknown]
  - Malignant neoplasm progression [Unknown]
  - Lung neoplasm [Unknown]
  - Cervical spinal stenosis [Unknown]

NARRATIVE: CASE EVENT DATE: 201307
